FAERS Safety Report 13229154 (Version 1)
Quarter: 2017Q1

REPORT INFORMATION
  Report Type: Spontaneous
  Country: FR (occurrence: FR)
  Receive Date: 20170214
  Receipt Date: 20170214
  Transmission Date: 20170428
  Serious: Yes (Hospitalization)
  Sender: FDA-Public Use
  Company Number: FR-ROCHE-201188

PATIENT
  Age: 51 Year
  Sex: Female
  Weight: 78 kg

DRUGS (10)
  1. XENICAL [Suspect]
     Active Substance: ORLISTAT
     Route: 048
     Dates: start: 19981222, end: 19990120
  2. SEGLOR [Concomitant]
     Active Substance: DIHYDROERGOTAMINE MESYLATE
     Indication: MIGRAINE
     Route: 048
  3. CIRKAN [Concomitant]
     Active Substance: DESONIDE\LIDOCAINE
     Indication: PERIPHERAL VENOUS DISEASE
     Dosage: DOSAGES : ASCORBIC ACID, 1200 MG QD, HESPERIDIN METHYL CHALCONE, 600 MG QD, KNEE HOLLY, 240 MG QD.
     Route: 048
  4. XENICAL [Suspect]
     Active Substance: ORLISTAT
     Route: 048
     Dates: start: 19981029, end: 19981214
  5. ISOMERIDE [Concomitant]
     Active Substance: DEXFENFLURAMINE
     Route: 065
  6. EXTRANASE [Concomitant]
     Active Substance: BROMELAINS
     Indication: OEDEMA
     Route: 048
  7. SPASFON (FRANCE) [Concomitant]
     Active Substance: PHLOROGLUCINOL
     Route: 065
  8. METEOSPASMYL [Concomitant]
     Active Substance: ALVERINE CITRATE\DIMETHICONE
     Indication: ABDOMINAL PAIN
     Dosage: VARIABLE DOSAGES
     Route: 048
  9. XENICAL [Suspect]
     Active Substance: ORLISTAT
     Indication: OVERWEIGHT
     Route: 048
     Dates: start: 19980910, end: 19981014
  10. DONORMYL [Concomitant]
     Active Substance: DOXYLAMINE SUCCINATE
     Indication: INSOMNIA
     Route: 048

REACTIONS (15)
  - Pyrexia [Unknown]
  - Malaise [Recovering/Resolving]
  - Chills [Unknown]
  - Transaminases increased [Recovered/Resolved]
  - Blood bilirubin increased [Recovered/Resolved]
  - Pruritus [Recovered/Resolved]
  - Weight decreased [Unknown]
  - Chromaturia [Unknown]
  - Hepatitis cholestatic [Recovered/Resolved]
  - Gastrointestinal disorder [Unknown]
  - Asthenia [Recovering/Resolving]
  - Biliary colic [Recovering/Resolving]
  - Jaundice [Recovered/Resolved]
  - Blood alkaline phosphatase increased [Recovered/Resolved]
  - Faeces discoloured [Unknown]

NARRATIVE: CASE EVENT DATE: 19980921
